FAERS Safety Report 9436622 (Version 1)
Quarter: 2013Q3

REPORT INFORMATION
  Report Type: Spontaneous
  Country: US (occurrence: None)
  Receive Date: 20130801
  Receipt Date: 20130801
  Transmission Date: 20140515
  Serious: Yes (Hospitalization)
  Sender: FDA-Public Use
  Company Number: None

PATIENT
  Age: 54 Year
  Sex: Male
  Weight: 94 kg

DRUGS (7)
  1. XARELTO [Suspect]
     Indication: KNEE ARTHROPLASTY
     Dosage: 10MG DAILY PO
     Route: 048
  2. INDOMETHACIN [Concomitant]
  3. OXYCODONE [Concomitant]
  4. HYDROMORPHONE [Concomitant]
  5. MEDROL [Concomitant]
  6. ZESTORETIC [Concomitant]
  7. ALLOPURINOL [Concomitant]

REACTIONS (3)
  - Adrenal haemorrhage [None]
  - Abdominal pain [None]
  - Adrenal mass [None]
